FAERS Safety Report 6065341-3 (Version None)
Quarter: 2009Q1

REPORT INFORMATION
  Report Type: 
  Country: None (occurrence: None)
  Receive Date: 20090130
  Receipt Date: 20090118
  Transmission Date: 20090719
  Serious: Yes (Life-Threatening, Hospitalization, Disabling)
  Sender: FDA-Public Use
  Company Number: 004582

PATIENT
  Age: 2 Year
  Sex: Female

DRUGS (3)
  1. BUSULFEX [Suspect]
     Indication: STEM CELL TRANSPLANT
     Dosage: 14 MG, QID INTRAVENOUS
     Route: 042
     Dates: start: 20080907, end: 20080910
  2. MELPHALAN (MELPHALAN) [Concomitant]
  3. METHYLPREDNISOLONE 16MG TAB [Concomitant]

REACTIONS (21)
  - BONE MARROW FAILURE [None]
  - CARDIAC FAILURE [None]
  - COAGULOPATHY [None]
  - DISEASE RECURRENCE [None]
  - GENERAL PHYSICAL HEALTH DETERIORATION [None]
  - GENERALISED OEDEMA [None]
  - HYPOVOLAEMIA [None]
  - ILEUS PARALYTIC [None]
  - INTESTINAL OBSTRUCTION [None]
  - LUNG DISORDER [None]
  - MUCOUS MEMBRANE DISORDER [None]
  - PIGMENTATION DISORDER [None]
  - PULMONARY OEDEMA [None]
  - RASH [None]
  - RENAL FAILURE [None]
  - SEPSIS [None]
  - STEVENS-JOHNSON SYNDROME [None]
  - URETHRITIS [None]
  - VENOOCCLUSIVE DISEASE [None]
  - VENOOCCLUSIVE LIVER DISEASE [None]
  - WEIGHT INCREASED [None]
